FAERS Safety Report 7246727-8 (Version None)
Quarter: 2011Q1

REPORT INFORMATION
  Report Type: 
  Country: None (occurrence: None)
  Receive Date: 20110127
  Receipt Date: 20110118
  Transmission Date: 20110831
  Serious: Yes (Hospitalization)
  Sender: FDA-Public Use
  Company Number: GB-JNJFOC-20110104750

PATIENT
  Sex: Female

DRUGS (6)
  1. CYCLOPHOSPHAMIDE [Suspect]
     Indication: BREAST CANCER
     Dosage: CYCLE 4
     Route: 042
  2. CYCLOPHOSPHAMIDE [Suspect]
     Dosage: CYCLE 3
     Route: 042
  3. FLUOROURACIL [Suspect]
     Indication: BREAST CANCER
     Dosage: CYCLE 3
     Route: 042
  4. NEULASTA [Suspect]
     Indication: PRODUCT USED FOR UNKNOWN INDICATION
     Route: 058
  5. DOXORUBICIN HYDROCHLORIDE [Suspect]
     Indication: BREAST CANCER
     Dosage: CYCLES 1-2
     Route: 042
  6. DOXORUBICIN HYDROCHLORIDE [Suspect]
     Dosage: CYCLE 3
     Route: 042

REACTIONS (4)
  - NEUTROPHIL COUNT DECREASED [None]
  - FEBRILE NEUTROPENIA [None]
  - MALAISE [None]
  - NERVOUSNESS [None]
